FAERS Safety Report 18399687 (Version 2)
Quarter: 2020Q4

REPORT INFORMATION
  Report Type: Spontaneous
  Country: US (occurrence: US)
  Receive Date: 20201019
  Receipt Date: 20201030
  Transmission Date: 20210114
  Serious: Yes (Hospitalization)
  Sender: FDA-Public Use
  Company Number: US-AMGEN-USASP2020166362

PATIENT
  Age: 3 Year
  Sex: Male

DRUGS (3)
  1. CALCIUM [Concomitant]
     Active Substance: CALCIUM
     Dosage: 500 MILLIGRAM, QD
     Dates: start: 201804
  2. XGEVA [Suspect]
     Active Substance: DENOSUMAB
     Indication: NOONAN SYNDROME
     Dosage: 25 MILLIGRAM, Q4WK
     Route: 058
     Dates: start: 201504, end: 201512
  3. XGEVA [Suspect]
     Active Substance: DENOSUMAB
     Dosage: UNK, QMO
     Route: 058
     Dates: start: 201804, end: 201904

REACTIONS (2)
  - Off label use [Unknown]
  - Hypercalcaemia [Recovered/Resolved]

NARRATIVE: CASE EVENT DATE: 201504
